FAERS Safety Report 25528200 (Version 3)
Quarter: 2025Q3

REPORT INFORMATION
  Report Type: Spontaneous
  Country: GB (occurrence: GB)
  Receive Date: 20250708
  Receipt Date: 20250725
  Transmission Date: 20251021
  Serious: Yes (Other)
  Sender: RANBAXY
  Company Number: GB-ORGANON-2008GBR000114

PATIENT
  Age: 55 Year
  Sex: Male
  Weight: 98 kg

DRUGS (9)
  1. CYCLOSPORINE [Suspect]
     Active Substance: CYCLOSPORINE
     Indication: Product used for unknown indication
     Route: 065
  2. TICAGRELOR [Suspect]
     Active Substance: TICAGRELOR
     Indication: Stent placement
     Dosage: 90 MILLIGRAM, DAILY, 90 MILLIGRAM, QD
     Route: 048
     Dates: start: 201511, end: 20161120
  3. SIMVASTATIN [Suspect]
     Active Substance: SIMVASTATIN
     Indication: Stent placement
     Dosage: 75 MILLIGRAM, QD; DOSAGE FORM: CONCENTRATE FOR CUTANEOUS SOLUTION
     Route: 003
     Dates: start: 201511
  4. PLACEBO [Suspect]
     Active Substance: PLACEBO
     Indication: Cardiovascular disorder
     Route: 058
     Dates: start: 20160614, end: 20161019
  5. RAMIPRIL [Concomitant]
     Active Substance: RAMIPRIL
     Indication: Hypertension
     Dosage: 2.5 MILLIGRAM, DAILY, 2.5 MILLIGRAM, QD
     Route: 065
     Dates: start: 201511
  6. NITROGLYCERIN [Concomitant]
     Active Substance: NITROGLYCERIN
     Indication: Chest pain
     Dosage: 400 MILLIGRAM, DAILY, 400 MILLIGRAM, PRN
     Route: 065
     Dates: start: 201511
  7. ATORVASTATIN [Concomitant]
     Active Substance: ATORVASTATIN
     Indication: Hypercholesterolaemia
     Dosage: 80 MILLIGRAM, DAILY, 80 MILLIGRAM, QD
     Route: 065
     Dates: start: 201511
  8. BISOPROLOL [Concomitant]
     Active Substance: BISOPROLOL
     Indication: Hypertension
     Route: 065
     Dates: start: 201511
  9. OMEPRAZOLE [Concomitant]
     Active Substance: OMEPRAZOLE
     Indication: Gastrointestinal disorder
     Dosage: 40 MILLIGRAM, DAILY, 40 MILLIGRAM, QD
     Route: 065
     Dates: start: 201511

REACTIONS (1)
  - Epistaxis [Recovered/Resolved]

NARRATIVE: CASE EVENT DATE: 20161118
